FAERS Safety Report 4489759-5 (Version None)
Quarter: 2004Q4

REPORT INFORMATION
  Report Type: 
  Country: None (occurrence: None)
  Receive Date: 20041026
  Receipt Date: 20041013
  Transmission Date: 20050328
  Serious: Yes (Hospitalization)
  Sender: FDA-Public Use
  Company Number: VISP-NO-0410S-0367

PATIENT
  Age: 68 Year
  Sex: Male
  Weight: 79 kg

DRUGS (9)
  1. VISIPAQUE [Suspect]
     Indication: THERAPEUTIC EMBOLISATION
     Dosage: 182 ML, SINGLE DOSE, I.A.
     Route: 013
     Dates: start: 20040818, end: 20040818
  2. IODISED OIL (LIPIODOL) [Concomitant]
  3. DOXORUBICIN HCL [Concomitant]
  4. BUPRENORPHINE HYDROCHLORIDE (TEMGESIC) [Concomitant]
  5. INSULIN [Concomitant]
  6. ONDANSETRON (ZOPHREN) [Concomitant]
  7. RAMIPRIL [Concomitant]
  8. PROPANOLOL HYDROCHLORIDE (AVLOCARDYL) [Concomitant]
  9. OMEPRAZOLE (INEXIUM) [Concomitant]

REACTIONS (5)
  - C-REACTIVE PROTEIN INCREASED [None]
  - CHILLS [None]
  - HYPOTHERMIA [None]
  - HYPOXIA [None]
  - TACHYCARDIA [None]
